FAERS Safety Report 20492771 (Version 3)
Quarter: 2022Q1

REPORT INFORMATION
  Report Type: Report from Study
  Country: US (occurrence: US)
  Receive Date: 20220219
  Receipt Date: 20220330
  Transmission Date: 20220424
  Serious: Yes (Hospitalization, Other)
  Sender: FDA-Public Use
  Company Number: US-NOVARTISPH-NVSC2022US036164

PATIENT
  Sex: Male

DRUGS (2)
  1. ENTRESTO [Suspect]
     Active Substance: SACUBITRIL\VALSARTAN
     Indication: Cardiac failure congestive
     Dosage: UNK UNK, BID
     Route: 048
  2. FUROSEMIDE [Suspect]
     Active Substance: FUROSEMIDE
     Indication: Product used for unknown indication
     Route: 048

REACTIONS (5)
  - Aspiration [Unknown]
  - Delayed recovery from anaesthesia [Unknown]
  - Hypotension [Unknown]
  - Dizziness [Unknown]
  - Fatigue [Unknown]
